FAERS Safety Report 15307300 (Version 5)
Quarter: 2019Q2

REPORT INFORMATION
  Report Type: Spontaneous
  Country: US (occurrence: US)
  Receive Date: 20180822
  Receipt Date: 20190524
  Transmission Date: 20190711
  Serious: Yes (Death, Hospitalization, Other)
  Sender: FDA-Public Use
  Company Number: US-PFIZER INC-2018332521

PATIENT
  Age: 65 Year
  Sex: Male
  Weight: 71.66 kg

DRUGS (6)
  1. HALCION [Suspect]
     Active Substance: TRIAZOLAM
     Indication: PANIC ATTACK
     Dosage: 2.5 MG, 1X/DAY
  2. LORAZEPAM. [Suspect]
     Active Substance: LORAZEPAM
     Indication: INSOMNIA
     Dosage: 2 MG, 3X/DAY
     Route: 048
  3. LORAZEPAM. [Suspect]
     Active Substance: LORAZEPAM
     Indication: ANXIETY
  4. HALCION [Suspect]
     Active Substance: TRIAZOLAM
     Indication: ANXIETY
  5. HALCION [Suspect]
     Active Substance: TRIAZOLAM
     Indication: INSOMNIA
     Dosage: 0.25 MG, 2X/DAY (0.25 MG BLUE PILL)
     Route: 048
  6. LORAZEPAM. [Suspect]
     Active Substance: LORAZEPAM
     Indication: PANIC ATTACK
     Dosage: 6 MG, UNK
     Route: 048

REACTIONS (11)
  - Death [Fatal]
  - Drug dependence [Unknown]
  - Intentional product misuse [Unknown]
  - Tremor [Unknown]
  - Depression [Unknown]
  - Cardiac arrest [Unknown]
  - Drug ineffective [Unknown]
  - Therapeutic response unexpected [Unknown]
  - Sleep deficit [Unknown]
  - Loss of personal independence in daily activities [Unknown]
  - Feeling of relaxation [Unknown]

NARRATIVE: CASE EVENT DATE: 20180630
